FAERS Safety Report 9795287 (Version 1)
Quarter: 2014Q1

REPORT INFORMATION
  Report Type: Spontaneous
  Country: CN (occurrence: CN)
  Receive Date: 20140103
  Receipt Date: 20140103
  Transmission Date: 20141002
  Serious: Yes (Other)
  Sender: FDA-Public Use
  Company Number: CN-ROCHE-1328366

PATIENT
  Age: 16 Year
  Sex: Female

DRUGS (1)
  1. SOMATROPIN [Suspect]
     Indication: TURNER^S SYNDROME
     Route: 065

REACTIONS (1)
  - Gastrointestinal tract adenoma [Unknown]
